FAERS Safety Report 21596874 (Version 1)
Quarter: 2022Q4

REPORT INFORMATION
  Report Type: Spontaneous
  Country: CN (occurrence: CN)
  Receive Date: 20221115
  Receipt Date: 20221115
  Transmission Date: 20230113
  Serious: Yes (Other)
  Sender: FDA-Public Use
  Company Number: CN-002147023-NVSC2022CN255853

PATIENT

DRUGS (1)
  1. ACLASTA [Suspect]
     Active Substance: ZOLEDRONIC ACID
     Indication: Osteoporosis
     Dosage: UNK, 100 ML/TIME AQUEOUS  SOLUTION WAS GIVEN BY INTRAVENOUS DRIP AT A CONSTANT RATE
     Route: 042

REACTIONS (1)
  - Paroxysmal arrhythmia [Unknown]
